FAERS Safety Report 6697592-9 (Version None)
Quarter: 2010Q2

REPORT INFORMATION
  Report Type: 
  Country: None (occurrence: None)
  Receive Date: 20100426
  Receipt Date: 20091228
  Transmission Date: 20101027
  Serious: No
  Sender: FDA-Public Use
  Company Number: US-ABBOTT-10P-163-0617236-00

PATIENT
  Sex: Male
  Weight: 99.88 kg

DRUGS (6)
  1. AZMACORT [Suspect]
     Indication: ASTHMA
     Dates: start: 19910101
  2. PROVENTIL [Concomitant]
     Indication: ASTHMA
  3. VERAPAMIL [Concomitant]
     Indication: CARDIAC PACEMAKER INSERTION
  4. VERAPAMIL [Concomitant]
     Indication: CARDIAC FIBRILLATION
  5. ASPIRIN [Concomitant]
     Indication: DRUG USE FOR UNKNOWN INDICATION
  6. OMEPRAZOLE [Concomitant]
     Indication: HIATUS HERNIA

REACTIONS (1)
  - DRUG EFFECT DELAYED [None]
